FAERS Safety Report 8448794-2 (Version None)
Quarter: 2012Q2

REPORT INFORMATION
  Report Type: 
  Country: None (occurrence: None)
  Receive Date: 20120619
  Receipt Date: 20120612
  Transmission Date: 20120825
  Serious: No
  Sender: FDA-Public Use
  Company Number: US-PFIZER INC-2012065965

PATIENT
  Sex: Female
  Weight: 92 kg

DRUGS (9)
  1. LISINOPRIL [Suspect]
     Indication: HYPERTENSION
     Dosage: 10 MG, DAILY
     Route: 048
     Dates: start: 20091001, end: 20110329
  2. LISINOPRIL [Suspect]
     Dosage: UNK
     Dates: start: 20120301
  3. NORVASC [Suspect]
     Indication: HYPERTENSION
     Dosage: 5 MG, DAILY
     Dates: start: 20110101, end: 20120101
  4. SPIRIVA [Concomitant]
     Indication: WHEEZING
     Dosage: UNK
     Dates: start: 20091101
  5. MELOXICAM [Concomitant]
     Indication: DISLOCATION OF VERTEBRA
     Dosage: 15 MG, UNK
  6. SPIRIVA [Concomitant]
     Indication: COUGH
  7. ACETAMINOPHEN [Concomitant]
     Indication: PAIN
     Dosage: UNK
  8. HYDROCODONE BITARTRATE + ACETAMINOPHEN [Concomitant]
     Indication: PAIN
     Dosage: UNK
  9. HYDROCHLOROTHIAZIDE [Concomitant]
     Indication: HYPERTENSION
     Dosage: UNK
     Dates: start: 20091001

REACTIONS (6)
  - TONGUE DISORDER [None]
  - HEADACHE [None]
  - DRUG ADMINISTRATION ERROR [None]
  - THROAT IRRITATION [None]
  - COUGH [None]
  - DRUG INTOLERANCE [None]
